FAERS Safety Report 9096423 (Version 1)
Quarter: 2013Q1

REPORT INFORMATION
  Report Type: Spontaneous
  Country: US (occurrence: US)
  Receive Date: 20130208
  Receipt Date: 20130208
  Transmission Date: 20140127
  Serious: Yes (Other)
  Sender: FDA-Public Use
  Company Number: US-RB-049278-13

PATIENT
  Age: 61 Year
  Sex: Female

DRUGS (2)
  1. MUCINEX DM (GUAIFENESIN) [Suspect]
     Indication: PRODUCT USED FOR UNKNOWN INDICATION
     Dosage: PATIENT STARTED PRODUCT ON ??/JAN/2013 AND STOPPED DRUG 5 DAYS AGO.
     Route: 048
  2. MUCINEX DM (DEXTROMETHORPHAN HYDROBROMIDE) [Suspect]

REACTIONS (6)
  - Agitation [Recovered/Resolved]
  - Muscle spasms [Recovered/Resolved]
  - Hypoaesthesia [Recovered/Resolved]
  - Gingival pain [Recovered/Resolved]
  - Insomnia [Recovered/Resolved]
  - Feeling abnormal [Recovered/Resolved]
